FAERS Safety Report 21623068 (Version 1)
Quarter: 2022Q4

REPORT INFORMATION
  Report Type: Spontaneous
  Country: EG (occurrence: EG)
  Receive Date: 20221121
  Receipt Date: 20221121
  Transmission Date: 20230112
  Serious: Yes (Other)
  Sender: FDA-Public Use
  Company Number: EG-ELI_LILLY_AND_COMPANY-EG202211007226

PATIENT
  Age: 72 Year
  Sex: Female

DRUGS (9)
  1. ETESEVIMAB [Suspect]
     Active Substance: ETESEVIMAB
     Indication: COVID-19
     Dosage: 1400 MG, SINGLE
     Route: 042
  2. BAMLANIVIMAB [Suspect]
     Active Substance: BAMLANIVIMAB
     Indication: COVID-19
     Dosage: 700 MG, SINGLE
     Route: 042
  3. ANVIZIRAM [Concomitant]
     Indication: COVID-19
     Dosage: 40 MG, DAILY
  4. AZITHROMYCIN [Concomitant]
     Active Substance: AZITHROMYCIN
     Indication: COVID-19
     Dosage: 500 MG, DAILY
  5. PREDNISOLONE METASULFOBENZOATE SODIUM [Concomitant]
     Active Substance: PREDNISOLONE SODIUM METAZOATE
     Indication: COVID-19
     Dosage: UNK, UNKNOWN
  6. ACETYLCYSTEINE [Concomitant]
     Active Substance: ACETYLCYSTEINE
     Indication: COVID-19
     Dosage: 200 MG, EVERY 8 HRS
  7. IVERZINE [Concomitant]
     Indication: COVID-19
     Dosage: 6 MG, UNKNOWN
  8. PARAMOL [PARACETAMOL] [Concomitant]
     Indication: COVID-19
     Dosage: 500 MG, EVERY 8 HRS
  9. OMEPRAZOLE [Concomitant]
     Active Substance: OMEPRAZOLE
     Indication: COVID-19
     Dosage: 20 MG, BID

REACTIONS (1)
  - Hypersensitivity [Recovered/Resolved]
